FAERS Safety Report 14354774 (Version 2)
Quarter: 2018Q1

REPORT INFORMATION
  Report Type: Spontaneous
  Country: CN (occurrence: CN)
  Receive Date: 20180105
  Receipt Date: 20180112
  Transmission Date: 20180509
  Serious: Yes (Life-Threatening, Other)
  Sender: FDA-Public Use
  Company Number: CN-ASTRAZENECA-2018SE01123

PATIENT
  Age: 53 Year
  Sex: Male

DRUGS (10)
  1. BRILINTA [Suspect]
     Active Substance: TICAGRELOR
     Indication: PLATELET DISORDER
     Route: 048
  2. PLENDIL [Suspect]
     Active Substance: FELODIPINE
     Route: 048
  3. ATORVASTATIN CALCIUM. [Concomitant]
     Active Substance: ATORVASTATIN CALCIUM
     Route: 048
  4. FUROSEMIDE. [Concomitant]
     Active Substance: FUROSEMIDE
     Route: 048
  5. HEPARIN [Concomitant]
     Active Substance: HEPARIN SODIUM
     Indication: COAGULOPATHY
  6. FELODIPINE. [Concomitant]
     Active Substance: FELODIPINE
     Route: 048
  7. SODIUM CHLORIDE. [Concomitant]
     Active Substance: SODIUM CHLORIDE
     Dosage: 0.9% 100 ML /BAG
     Route: 042
  8. ASPIRIN. [Concomitant]
     Active Substance: ASPIRIN
     Route: 048
  9. GINKGO BILOBA [Concomitant]
     Active Substance: GINKGO
  10. SPIRONOLACTONE. [Concomitant]
     Active Substance: SPIRONOLACTONE
     Route: 048

REACTIONS (16)
  - Subdural haematoma [Unknown]
  - Coma [Unknown]
  - Haemorrhage intracranial [Unknown]
  - Brain oedema [Unknown]
  - Sinus arrhythmia [Unknown]
  - Lung infection [Unknown]
  - Coronary artery stenosis [Unknown]
  - Brain herniation [Unknown]
  - Arteriosclerosis [Unknown]
  - Hypotension [Unknown]
  - Subarachnoid haemorrhage [Unknown]
  - Cerebral haematoma [Unknown]
  - Haematoma [Unknown]
  - Essential hypertension [Unknown]
  - Acute myocardial infarction [Unknown]
  - Coronary artery occlusion [Unknown]

NARRATIVE: CASE EVENT DATE: 20171229
